FAERS Safety Report 9512429 (Version 1)
Quarter: 2013Q1

REPORT INFORMATION
  Report Type: Spontaneous
  Country: US (occurrence: None)
  Receive Date: 20130305
  Receipt Date: 20130305
  Transmission Date: 20140127
  Serious: Yes (Other)
  Sender: FDA-Public Use
  Company Number: 163-21880-12091913

PATIENT
  Age: 74 Year
  Sex: Female
  Weight: 66.68 kg

DRUGS (1)
  1. REVLIMID [Suspect]
     Indication: BRONCHIAL NEOPLASM
     Dosage: 10 MG,  1 IN 1 D, PO
     Dates: start: 201205

REACTIONS (1)
  - Joint swelling [None]
